FAERS Safety Report 8338140-7 (Version None)
Quarter: 2012Q2

REPORT INFORMATION
  Report Type: 
  Country: None (occurrence: None)
  Receive Date: 20120504
  Receipt Date: 20120425
  Transmission Date: 20120825
  Serious: Yes (Other)
  Sender: FDA-Public Use
  Company Number: US-ASTRAZENECA-2011SE32575

PATIENT
  Age: 56 Year
  Sex: Male
  Weight: 72.6 kg

DRUGS (5)
  1. CARDEDILOL [Concomitant]
     Indication: CARDIAC DISORDER
  2. ENALAPRIL MALEATE [Concomitant]
     Indication: CARDIAC DISORDER
  3. NEXIUM [Suspect]
     Indication: GASTROOESOPHAGEAL REFLUX DISEASE
     Route: 048
     Dates: start: 20080101
  4. CYCLOBENZATRINE [Concomitant]
     Indication: MUSCLE RELAXANT THERAPY
  5. TRAMADOL HCL [Concomitant]
     Indication: PAIN

REACTIONS (5)
  - INTERVERTEBRAL DISC COMPRESSION [None]
  - DISABILITY [None]
  - UPPER LIMB FRACTURE [None]
  - LEFT VENTRICULAR FAILURE [None]
  - INTENTIONAL DRUG MISUSE [None]
